FAERS Safety Report 4853388-1 (Version None)
Quarter: 2005Q4

REPORT INFORMATION
  Report Type: 
  Country: None (occurrence: None)
  Receive Date: 20051214
  Receipt Date: 20051201
  Transmission Date: 20060501
  Serious: Yes (Other)
  Sender: FDA-Public Use
  Company Number: US-MERCK-0512USA01141

PATIENT
  Age: 40 Year
  Sex: Male

DRUGS (1)
  1. MEVACOR [Suspect]
     Indication: HYPERCHOLESTEROLAEMIA
     Route: 048

REACTIONS (1)
  - SYSTEMIC LUPUS ERYTHEMATOSUS [None]
